FAERS Safety Report 16091220 (Version 1)
Quarter: 2019Q1

REPORT INFORMATION
  Report Type: Spontaneous
  Country: ES (occurrence: ES)
  Receive Date: 20190319
  Receipt Date: 20190319
  Transmission Date: 20190418
  Serious: Yes (Other)
  Sender: FDA-Public Use
  Company Number: ES-BAYER-2019-022063

PATIENT
  Age: 48 Year
  Sex: Male

DRUGS (2)
  1. STIVARGA [Suspect]
     Active Substance: REGORAFENIB
     Indication: COLORECTAL ADENOCARCINOMA
     Dosage: DAILY DOSE 120 MG
     Route: 048
  2. STIVARGA [Suspect]
     Active Substance: REGORAFENIB
     Indication: COLORECTAL ADENOCARCINOMA
     Dosage: DAILY DOSE 160 MG
     Route: 048

REACTIONS (7)
  - Cough [Recovered/Resolved]
  - Diarrhoea [Recovered/Resolved]
  - Dyspnoea [Recovered/Resolved]
  - Asthenia [None]
  - Hypertension [None]
  - Diarrhoea [None]
  - Colorectal adenocarcinoma [None]
